FAERS Safety Report 24670817 (Version 1)
Quarter: 2024Q4

REPORT INFORMATION
  Report Type: Spontaneous
  Country: US (occurrence: None)
  Receive Date: 20241127
  Receipt Date: 20241127
  Transmission Date: 20250115
  Serious: No
  Sender: Public
  Company Number: None

PATIENT
  Age: 41 Year
  Sex: Female
  Weight: 96.75 kg

DRUGS (3)
  1. HERBALS\MITRAGYNINE [Suspect]
     Active Substance: HERBALS\MITRAGYNINE
     Dates: start: 20241123, end: 20241123
  2. IRON [Concomitant]
     Active Substance: IRON
  3. Omeprezol [Concomitant]

REACTIONS (12)
  - Euphoric mood [None]
  - Impaired driving ability [None]
  - Gait inability [None]
  - Nausea [None]
  - Vision blurred [None]
  - Poisoning [None]
  - Pruritus [None]
  - Abdominal pain upper [None]
  - Dizziness [None]
  - Initial insomnia [None]
  - Ear discomfort [None]
  - Dizziness [None]

NARRATIVE: CASE EVENT DATE: 20241123
